FAERS Safety Report 20483961 (Version 2)
Quarter: 2022Q1

REPORT INFORMATION
  Report Type: Spontaneous
  Country: US (occurrence: US)
  Receive Date: 20220217
  Receipt Date: 20220325
  Transmission Date: 20220423
  Serious: No
  Sender: FDA-Public Use
  Company Number: US-AIMMUNE THERAPEUTICS, INC.-2022AIMT00097

PATIENT

DRUGS (3)
  1. PALFORZIA [Suspect]
     Active Substance: PEANUT
     Indication: Food allergy
     Dosage: 40 MG, 1X/DAY
     Route: 048
     Dates: start: 20220120, end: 20220201
  2. PALFORZIA [Suspect]
     Active Substance: PEANUT
     Dosage: 40 MG, ONCE, LAST DOSE PRIOR EVENT
     Route: 048
     Dates: start: 20220201, end: 20220201
  3. PALFORZIA [Suspect]
     Active Substance: PEANUT
     Dosage: 20 MG, 1X/DAY
     Route: 048
     Dates: start: 20220202

REACTIONS (1)
  - Cough [Recovered/Resolved]

NARRATIVE: CASE EVENT DATE: 20220201
